FAERS Safety Report 6881406-8 (Version None)
Quarter: 2010Q3

REPORT INFORMATION
  Report Type: 
  Country: None (occurrence: None)
  Receive Date: 20100728
  Receipt Date: 20100104
  Transmission Date: 20110219
  Serious: No
  Sender: FDA-Public Use
  Company Number: US-MYLANLABS-2010S1000247

PATIENT
  Age: 66 Year
  Sex: Female

DRUGS (9)
  1. MILNACIPRAN HYDROCHLORIDE [Suspect]
     Indication: FIBROMYALGIA
     Route: 048
     Dates: start: 20091215, end: 20091216
  2. MILNACIPRAN HYDROCHLORIDE [Suspect]
     Route: 048
     Dates: start: 20091217, end: 20091220
  3. MILNACIPRAN HYDROCHLORIDE [Suspect]
     Route: 048
     Dates: start: 20091221
  4. TRAMADOL HYDROCHLORIDE [Suspect]
     Indication: PAIN
     Route: 048
     Dates: start: 20080101, end: 20091215
  5. TRAMADOL HYDROCHLORIDE [Suspect]
     Route: 048
     Dates: start: 20091215
  6. TRAMADOL HYDROCHLORIDE [Suspect]
     Route: 048
     Dates: start: 20091215
  7. MACROBID [Concomitant]
     Indication: URINARY TRACT INFECTION
     Route: 048
     Dates: start: 20090101, end: 20091217
  8. ACETAMINOPHEN [Concomitant]
     Indication: PAIN
     Route: 048
  9. AMBIEN [Concomitant]
     Indication: INSOMNIA
     Route: 048

REACTIONS (5)
  - ANXIETY [None]
  - ASTHENIA [None]
  - DIZZINESS [None]
  - NAUSEA [None]
  - VISION BLURRED [None]
